FAERS Safety Report 7190676-0 (Version None)
Quarter: 2010Q4

REPORT INFORMATION
  Report Type: 
  Country: None (occurrence: None)
  Receive Date: 20101223
  Receipt Date: 20101220
  Transmission Date: 20110411
  Serious: Yes (Other)
  Sender: FDA-Public Use
  Company Number: AU-PFIZER INC-2010175954

PATIENT
  Sex: Male

DRUGS (1)
  1. CADUET [Suspect]
     Dosage: UNK

REACTIONS (3)
  - DEPRESSION [None]
  - MOOD ALTERED [None]
  - PARAESTHESIA [None]
